FAERS Safety Report 20240229 (Version 1)
Quarter: 2021Q4

REPORT INFORMATION
  Report Type: Spontaneous
  Country: US (occurrence: None)
  Receive Date: 20211227
  Receipt Date: 20211227
  Transmission Date: 20220303
  Serious: Yes (Other)
  Sender: FDA-Public Use
  Company Number: None

PATIENT
  Age: 50 Year
  Sex: Female
  Weight: 82.1 kg

DRUGS (1)
  1. REGEN-COV [Suspect]
     Active Substance: CASIRIVIMAB\IMDEVIMAB
     Indication: SARS-CoV-2 test positive
     Dosage: OTHER QUANTITY : 600MG/600MG;?FREQUENCY : ONCE;?OTHER ROUTE : IV;?
     Route: 050
     Dates: start: 20211223, end: 20211223

REACTIONS (4)
  - Flushing [None]
  - Chest discomfort [None]
  - Paraesthesia [None]
  - Nausea [None]

NARRATIVE: CASE EVENT DATE: 20211223
